FAERS Safety Report 6828938-6 (Version None)
Quarter: 2010Q3

REPORT INFORMATION
  Report Type: 
  Country: None (occurrence: None)
  Receive Date: 20100709
  Receipt Date: 20100628
  Transmission Date: 20110219
  Serious: Yes (Hospitalization)
  Sender: FDA-Public Use
  Company Number: SE-GENENTECH-303804

PATIENT
  Age: 36 Year
  Sex: Female

DRUGS (6)
  1. MABTHERA [Suspect]
     Indication: RHEUMATOID ARTHRITIS
     Dosage: UNK
     Route: 042
     Dates: start: 20060928, end: 20060928
  2. OMEPRAZOLE [Concomitant]
     Dosage: DRUG NAME REPORTED AS OMEPRAZOLE GRC 40MG
  3. METHOTREXATE [Concomitant]
     Dosage: DRUG NAME REPORTED AS T METHOTREXATE 2,5MG
  4. FOLACIN [Concomitant]
     Dosage: DRUG NAME REPORTED AS T FOLACIN 5MG
  5. ACETAMINOPHEN W/ CODEINE [Concomitant]
     Dosage: DRUG NAME REPORTED AS T CITODON 500MG
  6. PREDNISOLON [Concomitant]
     Dosage: DRUG NAME REPORTED AS T PREDNISOLON 10MG

REACTIONS (2)
  - ARTHRITIS [None]
  - SEPSIS [None]
